FAERS Safety Report 10889581 (Version 1)
Quarter: 2015Q1

REPORT INFORMATION
  Report Type: Spontaneous
  Country: US (occurrence: US)
  Receive Date: 20150305
  Receipt Date: 20150305
  Transmission Date: 20150721
  Serious: No
  Sender: FDA-Public Use
  Company Number: US-GLAXOSMITHKLINE-US2015016223

PATIENT
  Age: 63 Year
  Sex: Female

DRUGS (14)
  1. VITAMIN C [Concomitant]
     Active Substance: ASCORBIC ACID
  2. COREG [Concomitant]
     Active Substance: CARVEDILOL
  3. FENTANYL TRANSDERMAL SYSTEM [Concomitant]
     Active Substance: FENTANYL
  4. GLUCOSAMINE [Concomitant]
     Active Substance: GLUCOSAMINE
  5. NEXIUM [Concomitant]
     Active Substance: ESOMEPRAZOLE MAGNESIUM
  6. ADVAIR DISKUS [Suspect]
     Active Substance: FLUTICASONE PROPIONATE\SALMETEROL XINAFOATE
     Indication: CHRONIC OBSTRUCTIVE PULMONARY DISEASE
     Dosage: 1 PUFF(S), BID
     Route: 055
     Dates: start: 201410
  7. LIDOCAINE PATCH [Concomitant]
     Active Substance: LIDOCAINE
  8. ADVAIR DISKUS [Suspect]
     Active Substance: FLUTICASONE PROPIONATE\SALMETEROL XINAFOATE
     Dosage: 1 PUFF(S), QD
     Route: 055
     Dates: start: 2014, end: 20150204
  9. MUCINEX [Concomitant]
     Active Substance: GUAIFENESIN
  10. BENEFIBRE [Concomitant]
  11. VOLTAREN [Concomitant]
     Active Substance: DICLOFENAC SODIUM
  12. ZINC [Concomitant]
     Active Substance: ZINC\ZINC CHLORIDE
  13. CALCIUM [Concomitant]
     Active Substance: CALCIUM
  14. DEMADEX [Concomitant]
     Active Substance: TORSEMIDE

REACTIONS (2)
  - Candida infection [Recovered/Resolved]
  - Dysphonia [Recovered/Resolved]

NARRATIVE: CASE EVENT DATE: 20141204
